FAERS Safety Report 7501064-9 (Version None)
Quarter: 2011Q2

REPORT INFORMATION
  Report Type: 
  Country: None (occurrence: None)
  Receive Date: 20110524
  Receipt Date: 20100608
  Transmission Date: 20111010
  Serious: No
  Sender: FDA-Public Use
  Company Number: US-NOVEN-ALL1-2010-03269

PATIENT

DRUGS (3)
  1. DAYTRANA [Suspect]
     Dosage: 20 MG, 1X/DAY:QD
     Route: 062
     Dates: start: 20100605, end: 20100605
  2. DAYTRANA [Suspect]
     Dosage: 40 MG, 1X/DAY:QD (TWO 20 MG. PATCHES DAILY)
     Route: 062
     Dates: start: 20100606
  3. FOCALIN [Concomitant]
     Dosage: 40 MG, 1X/DAY:QD
     Route: 048

REACTIONS (4)
  - OVERDOSE [None]
  - PRODUCT QUALITY ISSUE [None]
  - OFF LABEL USE [None]
  - NO ADVERSE EVENT [None]
